FAERS Safety Report 7563805-4 (Version None)
Quarter: 2011Q2

REPORT INFORMATION
  Report Type: 
  Country: None (occurrence: None)
  Receive Date: 20110622
  Receipt Date: 20110614
  Transmission Date: 20111010
  Serious: Yes (Hospitalization, Other)
  Sender: FDA-Public Use
  Company Number: US-ABBOTT-11P-163-0732489-00

PATIENT
  Sex: Female

DRUGS (3)
  1. NIASPAN [Suspect]
     Indication: TYPE IIA HYPERLIPIDAEMIA
  2. LIPITOR [Concomitant]
     Indication: TYPE IIA HYPERLIPIDAEMIA
     Route: 061
  3. LEVOXYL [Concomitant]
     Indication: HYPOTHYROIDISM

REACTIONS (4)
  - DYSPNOEA [None]
  - CARDIAC MURMUR [None]
  - AORTIC VALVE INCOMPETENCE [None]
  - AORTIC STENOSIS [None]
